FAERS Safety Report 25354968 (Version 1)
Quarter: 2025Q2

REPORT INFORMATION
  Report Type: Spontaneous
  Country: US (occurrence: US)
  Receive Date: 20250524
  Receipt Date: 20250524
  Transmission Date: 20250716
  Serious: No
  Sender: ABBVIE
  Company Number: US-ABBVIE-6284789

PATIENT
  Age: 61 Year
  Sex: Female
  Weight: 74 kg

DRUGS (1)
  1. LINZESS [Suspect]
     Active Substance: LINACLOTIDE
     Indication: Constipation
     Route: 048

REACTIONS (8)
  - Dysphagia [Recovered/Resolved]
  - Constipation [Recovering/Resolving]
  - Abdominal hernia [Unknown]
  - Hunger [Not Recovered/Not Resolved]
  - Dyspepsia [Recovering/Resolving]
  - Gastrointestinal inflammation [Unknown]
  - Anal incontinence [Unknown]
  - Blood cholesterol increased [Unknown]

NARRATIVE: CASE EVENT DATE: 20240208
